FAERS Safety Report 9292023 (Version 1)
Quarter: 2013Q2

REPORT INFORMATION
  Report Type: Spontaneous
  Country: US (occurrence: US)
  Receive Date: 20130516
  Receipt Date: 20130516
  Transmission Date: 20140414
  Serious: No
  Sender: FDA-Public Use
  Company Number: US-PFIZER INC-2013150301

PATIENT
  Age: 36 Year
  Sex: Male
  Weight: 86.17 kg

DRUGS (10)
  1. LYRICA [Suspect]
     Indication: FIBROMYALGIA
     Dosage: 75 MG, UNK
     Dates: start: 2009
  2. LEXAPRO [Suspect]
     Indication: ILL-DEFINED DISORDER
     Dosage: UNK
     Dates: start: 2013, end: 2013
  3. XANAX [Concomitant]
     Dosage: UNK
  4. ELAVIL [Concomitant]
     Dosage: UNK
  5. VICODIN [Concomitant]
     Dosage: 7.5MG/750MG
  6. SKELAXIN [Concomitant]
     Dosage: UNK
  7. TRAMADOL [Concomitant]
     Indication: BACK PAIN
     Dosage: UNK
  8. TRAMADOL [Concomitant]
     Indication: MUSCULOSKELETAL PAIN
  9. MOBIC [Concomitant]
     Dosage: UNK
     Dates: start: 2009
  10. VITAMIN B12 [Concomitant]
     Indication: VITAMIN B12 DECREASED
     Dosage: 1000MG ONCE A WEEK

REACTIONS (4)
  - Malaise [Recovered/Resolved]
  - Somnolence [Recovered/Resolved]
  - Middle insomnia [Recovered/Resolved]
  - Nausea [Recovered/Resolved]
